FAERS Safety Report 6654842-2 (Version None)
Quarter: 2010Q1

REPORT INFORMATION
  Report Type: 
  Country: None (occurrence: None)
  Receive Date: 20100329
  Receipt Date: 20100319
  Transmission Date: 20100710
  Serious: Yes (Death)
  Sender: FDA-Public Use
  Company Number: US-BIOGENIDEC-2009BI035307

PATIENT
  Age: 59 Year
  Sex: Female
  Weight: 76 kg

DRUGS (2)
  1. AVONEX [Suspect]
     Indication: MULTIPLE SCLEROSIS
     Route: 030
     Dates: start: 20020517, end: 20030501
  2. STEROIDS (NOS) [Concomitant]
     Route: 042

REACTIONS (1)
  - GLIOBLASTOMA MULTIFORME [None]
